FAERS Safety Report 25037984 (Version 4)
Quarter: 2025Q2

REPORT INFORMATION
  Report Type: Report from Study
  Country: PL (occurrence: PL)
  Receive Date: 20250304
  Receipt Date: 20250424
  Transmission Date: 20250716
  Serious: Yes (Hospitalization, Other)
  Sender: ULTRAGENYX PHARMACEUTICAL
  Company Number: PL-ULTRAGENYX PHARMACEUTICAL INC.-PL-UGX-25-00116

PATIENT
  Age: 12 Year
  Sex: Female

DRUGS (1)
  1. TRIHEPTANOIN [Suspect]
     Active Substance: TRIHEPTANOIN
     Indication: Long-chain acyl-coenzyme A dehydrogenase deficiency
     Route: 048
     Dates: start: 20240624

REACTIONS (4)
  - Blood creatine phosphokinase increased [Recovering/Resolving]
  - Diarrhoea [Not Recovered/Not Resolved]
  - Abdominal pain [Not Recovered/Not Resolved]
  - Aspartate aminotransferase increased [Recovered/Resolved]

NARRATIVE: CASE EVENT DATE: 20240601
